FAERS Safety Report 6700554-6 (Version None)
Quarter: 2010Q2

REPORT INFORMATION
  Report Type: 
  Country: None (occurrence: None)
  Receive Date: 20100428
  Receipt Date: 20100419
  Transmission Date: 20101027
  Serious: Yes (Hospitalization)
  Sender: FDA-Public Use
  Company Number: B0643474A

PATIENT
  Sex: Female

DRUGS (2)
  1. LAMICTAL [Suspect]
     Indication: DEPRESSION
     Dosage: 50MG THREE TIMES PER DAY
     Route: 065
     Dates: start: 20100115, end: 20100129
  2. ANTICONVULSANTS [Concomitant]

REACTIONS (14)
  - ALPHA 1 GLOBULIN INCREASED [None]
  - ALPHA 2 GLOBULIN INCREASED [None]
  - BLISTER [None]
  - C-REACTIVE PROTEIN INCREASED [None]
  - CONJUNCTIVAL HYPERAEMIA [None]
  - DERMATITIS BULLOUS [None]
  - ERYTHEMA [None]
  - FATIGUE [None]
  - GENITAL EROSION [None]
  - MUCOSAL EROSION [None]
  - MUCOSAL HYPERAEMIA [None]
  - NEUTROPHIL COUNT INCREASED [None]
  - RED BLOOD CELL SEDIMENTATION RATE INCREASED [None]
  - STEVENS-JOHNSON SYNDROME [None]
